FAERS Safety Report 9913644 (Version 1)
Quarter: 2014Q1

REPORT INFORMATION
  Report Type: Spontaneous
  Country: US (occurrence: US)
  Receive Date: 20140220
  Receipt Date: 20140220
  Transmission Date: 20141002
  Serious: No
  Sender: FDA-Public Use
  Company Number: US-009507513-1402USA004722

PATIENT
  Sex: Male

DRUGS (3)
  1. PEGINTRON [Suspect]
     Indication: HEPATITIS C
     Dosage: REDIPEN, QW
     Route: 058
     Dates: start: 20140207
  2. RIBAVIRIN [Suspect]
     Indication: HEPATITIS C
     Dosage: BID
     Route: 048
     Dates: start: 20140207
  3. SOVALDI [Suspect]
     Dosage: UNK
     Dates: start: 20140207

REACTIONS (4)
  - Headache [Unknown]
  - Insomnia [Unknown]
  - Vomiting [Unknown]
  - Pyrexia [Unknown]
